FAERS Safety Report 12310848 (Version 1)
Quarter: 2016Q2

REPORT INFORMATION
  Report Type: Not Available
  Country: US (occurrence: US)
  Receive Date: 20160427
  Receipt Date: 20160427
  Transmission Date: 20160815
  Serious: No
  Sender: FDA-Public Use
  Company Number: US-CIPHERPHARMA-2016-US-000669

PATIENT
  Age: 58 Year
  Sex: Male
  Weight: 102.06 kg

DRUGS (1)
  1. SITAVIG [Suspect]
     Active Substance: ACYCLOVIR
     Dosage: 1 TABLET IN CHEEK FOR 7-8 HOURS
     Route: 048
     Dates: start: 20160118, end: 20160211

REACTIONS (2)
  - Product solubility abnormal [None]
  - Incorrect route of drug administration [Unknown]

NARRATIVE: CASE EVENT DATE: 20160211
